FAERS Safety Report 6306019-8 (Version None)
Quarter: 2009Q3

REPORT INFORMATION
  Report Type: 
  Country: None (occurrence: None)
  Receive Date: 20090812
  Receipt Date: 20090805
  Transmission Date: 20100115
  Serious: Yes (Hospitalization)
  Sender: FDA-Public Use
  Company Number: DE-ASTRAZENECA-2009SE05316

PATIENT
  Age: 518 Month
  Sex: Female
  Weight: 68 kg

DRUGS (1)
  1. SEROQUEL [Suspect]
     Indication: PSYCHOTIC DISORDER
     Route: 048
     Dates: start: 20060101, end: 20090701

REACTIONS (1)
  - HEPATITIS [None]
